FAERS Safety Report 12683677 (Version 2)
Quarter: 2016Q3

REPORT INFORMATION
  Report Type: Spontaneous
  Country: US (occurrence: US)
  Receive Date: 20160825
  Receipt Date: 20160902
  Transmission Date: 20161109
  Serious: Yes (Other)
  Sender: FDA-Public Use
  Company Number: US-MALLINCKRODT-T201603885

PATIENT
  Age: 21 Month
  Sex: Female
  Weight: 11 kg

DRUGS (4)
  1. HEPARIN [Concomitant]
     Active Substance: HEPARIN SODIUM
     Indication: ANTICOAGULANT THERAPY
     Dosage: 150 UNITS PER KG
     Dates: start: 20160811, end: 20160811
  2. UVADEX [Suspect]
     Active Substance: METHOXSALEN
     Indication: GRAFT VERSUS HOST DISEASE
     Dosage: UNKNOWN
     Dates: start: 20160726, end: 20160726
  3. UVADEX [Suspect]
     Active Substance: METHOXSALEN
     Dosage: UNK
     Dates: start: 20160729, end: 20160729
  4. UVADEX [Suspect]
     Active Substance: METHOXSALEN
     Dosage: UNK
     Dates: start: 20160811, end: 20160811

REACTIONS (4)
  - Haemoglobin decreased [Unknown]
  - Haemolysis [Unknown]
  - Blood bilirubin increased [Unknown]
  - Blood lactate dehydrogenase increased [Unknown]

NARRATIVE: CASE EVENT DATE: 20160726
